FAERS Safety Report 17414471 (Version 2)
Quarter: 2020Q1

REPORT INFORMATION
  Report Type: Spontaneous
  Country: US (occurrence: US)
  Receive Date: 20200213
  Receipt Date: 20200303
  Transmission Date: 20200409
  Serious: No
  Sender: FDA-Public Use
  Company Number: US-PFIZER INC-2020062806

PATIENT
  Age: 73 Year
  Sex: Female
  Weight: 63.49 kg

DRUGS (1)
  1. PREMARIN [Suspect]
     Active Substance: ESTROGENS, CONJUGATED
     Indication: HORMONE LEVEL ABNORMAL
     Dosage: (0.3 ONCE)
     Dates: start: 20200214

REACTIONS (1)
  - Malaise [Unknown]
